FAERS Safety Report 5768553-9 (Version None)
Quarter: 2008Q2

REPORT INFORMATION
  Report Type: 
  Country: None (occurrence: None)
  Receive Date: 20080612
  Receipt Date: 20080305
  Transmission Date: 20081010
  Serious: No
  Sender: FDA-Public Use
  Company Number: US-ABBOTT-08P-163-0441479-00

PATIENT
  Sex: Male
  Weight: 106.69 kg

DRUGS (7)
  1. HUMIRA [Suspect]
     Indication: RHEUMATOID ARTHRITIS
     Route: 058
     Dates: start: 20080305
  2. HUMIRA [Suspect]
     Route: 058
     Dates: start: 20030101, end: 20080305
  3. LISINOPRIL [Concomitant]
     Indication: HYPERTENSION
     Route: 048
  4. CLOPIDOGREL [Concomitant]
     Indication: STENT PLACEMENT
     Route: 048
  5. EZETIMIBE [Concomitant]
     Indication: BLOOD CHOLESTEROL INCREASED
     Route: 048
  6. ASPIRIN [Concomitant]
     Indication: CARDIOVASCULAR EVENT PROPHYLAXIS
     Route: 048
  7. FUROSEMIDE [Concomitant]
     Indication: FLUID RETENTION
     Route: 048

REACTIONS (1)
  - ACCIDENTAL EXPOSURE [None]
